FAERS Safety Report 23261103 (Version 1)
Quarter: 2023Q4

REPORT INFORMATION
  Report Type: Spontaneous
  Country: US (occurrence: US)
  Receive Date: 20231205
  Receipt Date: 20231205
  Transmission Date: 20240109
  Serious: No
  Sender: FDA-Public Use
  Company Number: US-CELLTRION INC.-2023US001406

PATIENT

DRUGS (3)
  1. TRUXIMA [Suspect]
     Active Substance: RITUXIMAB-ABBS
     Indication: Connective tissue disorder
     Dosage: 1000 MG WEEKS 0 AND 2
     Route: 042
     Dates: start: 20230116
  2. TRUXIMA [Suspect]
     Active Substance: RITUXIMAB-ABBS
     Dosage: 1000 MG ONCE EVERY TWO WEEKS IV
     Route: 042
     Dates: start: 20230127
  3. TRUXIMA [Suspect]
     Active Substance: RITUXIMAB-ABBS
     Dosage: 1000 MG ONCE EVERY TWO WEEKS IV
     Route: 042
     Dates: start: 20230210

REACTIONS (2)
  - Connective tissue disorder [Unknown]
  - Off label use [Unknown]
